FAERS Safety Report 23270667 (Version 2)
Quarter: 2023Q4

REPORT INFORMATION
  Report Type: Spontaneous
  Country: FR (occurrence: FR)
  Receive Date: 20231207
  Receipt Date: 20231219
  Transmission Date: 20240109
  Serious: Yes (Hospitalization, Other)
  Sender: FDA-Public Use
  Company Number: None

PATIENT
  Age: 55 Year
  Sex: Female
  Weight: 104 kg

DRUGS (1)
  1. KEYTRUDA [Suspect]
     Active Substance: PEMBROLIZUMAB
     Indication: Triple negative breast cancer
     Dosage: 200 MILLIGRAM, 21 DAYS
     Route: 042
     Dates: start: 20230309

REACTIONS (4)
  - Tremor [Recovered/Resolved]
  - Atrial fibrillation [Recovered/Resolved]
  - Secondary adrenocortical insufficiency [Recovering/Resolving]
  - Thyroiditis [Recovered/Resolved]

NARRATIVE: CASE EVENT DATE: 20230405
